FAERS Safety Report 11304173 (Version 1)
Quarter: 2015Q3

REPORT INFORMATION
  Report Type: Spontaneous
  Country: US (occurrence: US)
  Receive Date: 20150723
  Receipt Date: 20150723
  Transmission Date: 20151125
  Serious: No
  Sender: FDA-Public Use
  Company Number: US-JNJFOC-20150406821

PATIENT
  Age: 22 Year
  Sex: Female

DRUGS (2)
  1. CHILDRENS MOTRIN COLD [Suspect]
     Active Substance: IBUPROFEN\PSEUDOEPHEDRINE HYDROCHLORIDE
     Indication: PYREXIA
     Route: 048
  2. CHILDRENS MOTRIN COLD [Suspect]
     Active Substance: IBUPROFEN\PSEUDOEPHEDRINE HYDROCHLORIDE
     Indication: PAIN
     Route: 048

REACTIONS (1)
  - Wrong drug administered [Unknown]
